FAERS Safety Report 7293358-X (Version None)
Quarter: 2011Q1

REPORT INFORMATION
  Report Type: 
  Country: None (occurrence: None)
  Receive Date: 20110215
  Receipt Date: 20110204
  Transmission Date: 20110831
  Serious: Yes (Other)
  Sender: FDA-Public Use
  Company Number: US-WATSON-2011-01560

PATIENT
  Age: 25 Year
  Sex: Male

DRUGS (1)
  1. ISOFLURANE [Suspect]
     Indication: STATUS EPILEPTICUS
     Dosage: END TITAL CONC. OF 1%

REACTIONS (1)
  - NUCLEAR MAGNETIC RESONANCE IMAGING BRAIN ABNORMAL [None]
